FAERS Safety Report 6523151-4 (Version None)
Quarter: 2009Q4

REPORT INFORMATION
  Report Type: 
  Country: None (occurrence: None)
  Receive Date: 20091222
  Receipt Date: 20091211
  Transmission Date: 20100525
  Serious: Yes (Life-Threatening)
  Sender: FDA-Public Use
  Company Number: DE-1180130

PATIENT
  Age: 74 Year
  Sex: Male

DRUGS (4)
  1. FLUORESCITE [Suspect]
     Indication: MACULAR DEGENERATION
     Dosage: 5 ML, INTRAVENOUS BOLUS
     Route: 040
     Dates: start: 20091030, end: 20091030
  2. METFORMIN HCL [Concomitant]
     Dosage: 850MG BID
  3. GLIMEPIRID (GLIMIPIRIDE) [Concomitant]
     Dosage: 850MG BID
  4. ENALAPRIL MALEATE [Concomitant]

REACTIONS (6)
  - ASTHENIA [None]
  - CARDIAC ARREST [None]
  - DIZZINESS [None]
  - FATIGUE [None]
  - HYPERHIDROSIS [None]
  - SYNCOPE [None]
